FAERS Safety Report 8830962 (Version 1)
Quarter: 2012Q4

REPORT INFORMATION
  Report Type: 
  Country: DE (occurrence: DE)
  Receive Date: 20121008
  Receipt Date: 20121008
  Transmission Date: 20130627
  Serious: Yes (Other)
  Sender: FDA-Public Use
  Company Number: DE-PFIZER INC-2012246414

PATIENT
  Age: 50 Year
  Sex: Female
  Weight: 55 kg

DRUGS (4)
  1. PANTOPRAZOLE [Suspect]
     Indication: HELICOBACTER INFECTION
     Dosage: UNK
     Route: 048
     Dates: start: 20101226
  2. CLARITHROMYCIN [Suspect]
     Dosage: UNK
     Route: 048
     Dates: start: 20101226
  3. AMOXICILLIN [Suspect]
     Dosage: UNK
     Route: 048
     Dates: start: 20101226
  4. PROGRAF [Suspect]
     Indication: RENAL TRANSPLANT
     Dosage: 4.5 DF, 2x/day (In the morning and evening)
     Route: 048
     Dates: start: 20100922

REACTIONS (1)
  - Immunosuppressant drug level increased [Recovered/Resolved]
